FAERS Safety Report 5085198-7 (Version None)
Quarter: 2006Q3

REPORT INFORMATION
  Report Type: 
  Country: None (occurrence: None)
  Receive Date: 20060817
  Receipt Date: 20060810
  Transmission Date: 20061208
  Serious: Yes (Death)
  Sender: FDA-Public Use
  Company Number: GXBR2006US01579

PATIENT
  Age: 36 Year
  Sex: Female
  Weight: 113.4 kg

DRUGS (14)
  1. IMIPRAMINE HCL [Suspect]
     Indication: DEPRESSION
     Dosage: 200 MG, QHS, ORAL
     Route: 048
     Dates: start: 20050901
  2. SEROQUEL [Concomitant]
  3. METFORMIN HCL [Concomitant]
  4. LEVOXYL [Concomitant]
  5. BUPROPION HCL [Concomitant]
  6. GABAPENTIN [Concomitant]
  7. TRAZODONE HCL [Concomitant]
  8. DIAZEPAM [Concomitant]
  9. METHADONE HCL [Concomitant]
  10. ZYRTEC [Concomitant]
  11. AVELOX [Concomitant]
  12. LIDODERM [Concomitant]
  13. SINGULAIR [Concomitant]
  14. LYRICA [Concomitant]

REACTIONS (1)
  - HEPATIC STEATOSIS [None]
